FAERS Safety Report 14720087 (Version 1)
Quarter: 2018Q1

REPORT INFORMATION
  Report Type: Spontaneous
  Country: US (occurrence: US)
  Receive Date: 20180330
  Receipt Date: 20180330
  Transmission Date: 20180509
  Serious: Yes (Hospitalization)
  Sender: FDA-Public Use
  Company Number: None

PATIENT
  Age: 64 Year

DRUGS (7)
  1. AMBIE DURAGESIC [Concomitant]
  2. GABAPENTIN. [Concomitant]
     Active Substance: GABAPENTIN
  3. XENAXINE [Concomitant]
  4. PLAQUENIL [Concomitant]
     Active Substance: HYDROXYCHLOROQUINE SULFATE
  5. ARAVA [Concomitant]
     Active Substance: LEFLUNOMIDE
  6. ORENCIA [Suspect]
     Active Substance: ABATACEPT
     Indication: RHEUMATOID ARTHRITIS
     Route: 058
     Dates: start: 20170217
  7. TETRABENANZINE [Concomitant]

REACTIONS (2)
  - Infection [None]
  - Unresponsive to stimuli [None]

NARRATIVE: CASE EVENT DATE: 20180304
